FAERS Safety Report 5406990-2 (Version None)
Quarter: 2007Q3

REPORT INFORMATION
  Report Type: 
  Country: None (occurrence: None)
  Receive Date: 20070801
  Receipt Date: 20070717
  Transmission Date: 20080115
  Serious: Yes (Life-Threatening)
  Sender: FDA-Public Use
  Company Number: 100#03#2007-02769

PATIENT
  Age: 55 Year
  Sex: Male

DRUGS (15)
  1. TRAMADOL HCL [Suspect]
     Indication: PAIN
     Dosage: 50 MG FOUR TIMES A DAY, 100 MG FOUR TIMES A DAY, ORAL
     Route: 048
     Dates: start: 20070625, end: 20070627
  2. TRAMADOL HCL [Suspect]
     Indication: PAIN
     Dosage: 50 MG FOUR TIMES A DAY, 100 MG FOUR TIMES A DAY, ORAL
     Route: 048
     Dates: start: 20070405
  3. WARFARIN SODIUM [Suspect]
     Indication: PULMONARY EMBOLISM
     Dosage: 4 MG, ORAL
     Route: 048
     Dates: start: 20070618, end: 20070626
  4. WARFARIN SODIUM [Suspect]
     Indication: PULMONARY EMBOLISM
     Dosage: 4 MG, ORAL
     Route: 048
     Dates: start: 20030228
  5. BACLOFEN [Concomitant]
  6. ACETAMINOPHEN W/ CODEINE [Concomitant]
  7. DIGOXIN [Concomitant]
  8. FLUOXETINE [Concomitant]
  9. FUROSEMIDE (FUROSEMIDE) (FUROSEMIDE) [Concomitant]
  10. GABAPENTIN (GABAPENTIN) (GABAPENTIN) [Concomitant]
  11. METOPROLOL SUCCINATE [Concomitant]
  12. OMEPRAZOLE [Concomitant]
  13. SPIRONOLACTONE [Concomitant]
  14. THIAMINE HYDROCHLORIDE (THIAMINE HYDROCHLORIDE) (THIAMINE) [Concomitant]
  15. TRAZODONE (TRAZODONE) (TRAZODONE) [Concomitant]

REACTIONS (1)
  - INTERNATIONAL NORMALISED RATIO INCREASED [None]
